FAERS Safety Report 12050083 (Version 1)
Quarter: 2016Q1

REPORT INFORMATION
  Report Type: Report from Study
  Country: US (occurrence: US)
  Receive Date: 20160209
  Receipt Date: 20160209
  Transmission Date: 20160526
  Serious: No
  Sender: FDA-Public Use
  Company Number: US-ABBVIE-15P-163-1434565-00

PATIENT
  Age: 58 Year
  Sex: Male
  Weight: 99.88 kg

DRUGS (1)
  1. HUMIRA [Suspect]
     Active Substance: ADALIMUMAB
     Indication: PSORIASIS
     Dosage: DAY 1
     Route: 065
     Dates: start: 20150710

REACTIONS (4)
  - Drug ineffective [Not Recovered/Not Resolved]
  - Haemoptysis [Recovered/Resolved]
  - Drug dose omission [Not Recovered/Not Resolved]
  - Fear of injection [Unknown]

NARRATIVE: CASE EVENT DATE: 20150710
